FAERS Safety Report 6605026-5 (Version None)
Quarter: 2010Q1

REPORT INFORMATION
  Report Type: 
  Country: None (occurrence: None)
  Receive Date: 20100226
  Receipt Date: 20100215
  Transmission Date: 20100710
  Serious: Yes (Other)
  Sender: FDA-Public Use
  Company Number: FR-JNJFOC-20100208046

PATIENT
  Age: 74 Year
  Sex: Female

DRUGS (4)
  1. INFLIXIMAB [Suspect]
     Indication: RHEUMATOID ARTHRITIS
     Route: 042
  2. INFLIXIMAB [Suspect]
     Route: 042
  3. LEFLUNOMIDE [Concomitant]
  4. LEFLUNOMIDE [Concomitant]

REACTIONS (3)
  - CYTOLYTIC HEPATITIS [None]
  - MENINGITIS TUBERCULOUS [None]
  - NORMAL PRESSURE HYDROCEPHALUS [None]
